FAERS Safety Report 19954769 (Version 2)
Quarter: 2021Q4

REPORT INFORMATION
  Report Type: Spontaneous
  Country: US (occurrence: US)
  Receive Date: 20211014
  Receipt Date: 20211115
  Transmission Date: 20220303
  Serious: No
  Sender: FDA-Public Use
  Company Number: US-MILLICENT HOLDINGS LTD.-MILL20210903

PATIENT
  Age: 47 Year
  Sex: Female

DRUGS (2)
  1. INTRAROSA [Suspect]
     Active Substance: PRASTERONE
     Indication: Dyspareunia
     Dosage: ONE 6.5 MG INSERT
     Route: 067
     Dates: start: 20210914
  2. PROZAC [Concomitant]
     Active Substance: FLUOXETINE HYDROCHLORIDE
     Indication: Anxiety
     Dosage: UNKNOWN
     Route: 065

REACTIONS (5)
  - Anxiety [Recovered/Resolved]
  - Dyspareunia [Recovering/Resolving]
  - Condition aggravated [Recovering/Resolving]
  - Hot flush [Recovered/Resolved]
  - Product dose omission issue [None]

NARRATIVE: CASE EVENT DATE: 20210101
